FAERS Safety Report 10484436 (Version 2)
Quarter: 2014Q4

REPORT INFORMATION
  Report Type: Spontaneous
  Country: JP (occurrence: JP)
  Receive Date: 20140930
  Receipt Date: 20141020
  Transmission Date: 20150528
  Serious: Yes (Death, Hospitalization)
  Sender: FDA-Public Use
  Company Number: JP-MYLANLABS-2014M1005900

PATIENT

DRUGS (5)
  1. TACROLIMUS. [Suspect]
     Active Substance: TACROLIMUS
     Indication: OFF LABEL USE
  2. AZATHIOPRINE. [Suspect]
     Active Substance: AZATHIOPRINE
     Indication: ORGANISING PNEUMONIA
     Dosage: 75MG
     Route: 065
     Dates: start: 201011
  3. AZATHIOPRINE. [Suspect]
     Active Substance: AZATHIOPRINE
     Indication: OFF LABEL USE
  4. TACROLIMUS. [Suspect]
     Active Substance: TACROLIMUS
     Indication: ORGANISING PNEUMONIA
     Dosage: 1MG
     Route: 065
     Dates: start: 201101
  5. CYCLOPHOSPHAMIDE. [Suspect]
     Active Substance: CYCLOPHOSPHAMIDE
     Indication: ORGANISING PNEUMONIA
     Route: 065
     Dates: start: 2011

REACTIONS (5)
  - Progressive multifocal leukoencephalopathy [Not Recovered/Not Resolved]
  - Lymphoma [Fatal]
  - Hemianopia [None]
  - Aphasia [None]
  - Apraxia [None]
